FAERS Safety Report 20559455 (Version 1)
Quarter: 2022Q1

REPORT INFORMATION
  Report Type: Spontaneous
  Country: US (occurrence: US)
  Receive Date: 20220307
  Receipt Date: 20220307
  Transmission Date: 20220424
  Serious: Yes (Other)
  Sender: FDA-Public Use
  Company Number: US-drreddys-SPO/USA/22/0147379

PATIENT
  Age: 18 Year

DRUGS (1)
  1. ZENATANE [Suspect]
     Active Substance: ISOTRETINOIN
     Indication: Product used for unknown indication
     Dosage: RMA ISSUE DATE: 02 DECEMBER 2021 10:07:02 AM AND 04 NOVEMBER 2021 02:49:46 PM

REACTIONS (1)
  - Agitation [Unknown]
